FAERS Safety Report 5352522-7 (Version None)
Quarter: 2007Q2

REPORT INFORMATION
  Report Type: 
  Country: None (occurrence: None)
  Receive Date: 20070611
  Receipt Date: 20070531
  Transmission Date: 20071010
  Serious: Yes (Other)
  Sender: FDA-Public Use
  Company Number: US-JNJFOC-20070404527

PATIENT
  Sex: Female
  Weight: 63.5 kg

DRUGS (18)
  1. REMICADE [Suspect]
     Route: 042
  2. REMICADE [Suspect]
     Route: 042
  3. REMICADE [Suspect]
     Route: 042
  4. REMICADE [Suspect]
     Route: 042
  5. REMICADE [Suspect]
     Route: 042
  6. REMICADE [Suspect]
     Dosage: Q6WKS
     Route: 042
  7. REMICADE [Suspect]
     Dosage: Q6WKS
     Route: 042
  8. REMICADE [Suspect]
     Indication: RHEUMATOID ARTHRITIS
     Dosage: Q6WKS
     Route: 042
  9. HYZAAR [Concomitant]
  10. ZOCOR [Concomitant]
  11. OSCAL D [Concomitant]
  12. PLAQUENIL [Concomitant]
  13. TYLENOL [Concomitant]
  14. METHOTREXATE [Concomitant]
  15. FOLIC ACID [Concomitant]
  16. LEUCOVORIN CALCIUM [Concomitant]
  17. FOSAMAX [Concomitant]
  18. VICODIN [Concomitant]
     Dosage: 1-2 Q6H PRN

REACTIONS (8)
  - BACK PAIN [None]
  - CHILLS [None]
  - DIZZINESS [None]
  - HEADACHE [None]
  - NAUSEA [None]
  - PAIN IN EXTREMITY [None]
  - PRURITUS [None]
  - VOMITING [None]
